FAERS Safety Report 19128226 (Version 1)
Quarter: 2021Q2

REPORT INFORMATION
  Report Type: Spontaneous
  Country: US (occurrence: US)
  Receive Date: 20210413
  Receipt Date: 20210413
  Transmission Date: 20210717
  Serious: No
  Sender: FDA-Public Use
  Company Number: US-ALLERGAN-2033952US

PATIENT
  Sex: Female
  Weight: 47.62 kg

DRUGS (1)
  1. LATISSE [Suspect]
     Active Substance: BIMATOPROST
     Indication: GROWTH OF EYELASHES
     Dosage: 2 GTT, QPM
     Route: 061
     Dates: start: 202003

REACTIONS (10)
  - Wrong technique in product usage process [Unknown]
  - Product delivery mechanism issue [Unknown]
  - Product quality issue [Unknown]
  - Madarosis [Unknown]
  - Inappropriate schedule of product administration [Unknown]
  - Blepharal pigmentation [Unknown]
  - Eyelid thickening [Unknown]
  - Hypopigmentation of eyelid [Not Recovered/Not Resolved]
  - Eyelid irritation [Unknown]
  - Eyelid pain [Unknown]
